FAERS Safety Report 23225342 (Version 1)
Quarter: 2023Q4

REPORT INFORMATION
  Report Type: Spontaneous
  Country: CN (occurrence: CN)
  Receive Date: 20231124
  Receipt Date: 20231124
  Transmission Date: 20240109
  Serious: Yes (Other)
  Sender: FDA-Public Use
  Company Number: None

PATIENT
  Age: 35 Year
  Sex: Male
  Weight: 72 kg

DRUGS (1)
  1. MANNITOL [Suspect]
     Active Substance: MANNITOL
     Indication: Reduction of increased intracranial pressure
     Dosage: 250 MILLILITER (ML), THREE TIMES IN ONE DAY, STARTED AT 03:14 HOURS, DOSAGE FORM - INJECTION
     Route: 041
     Dates: start: 20231114, end: 20231114

REACTIONS (3)
  - Hypersensitivity [Recovering/Resolving]
  - Papule [Recovered/Resolved]
  - Pruritus [Recovered/Resolved]

NARRATIVE: CASE EVENT DATE: 20231114
